FAERS Safety Report 4380154-6 (Version None)
Quarter: 2004Q2

REPORT INFORMATION
  Report Type: 
  Country: None (occurrence: None)
  Receive Date: 20040614
  Receipt Date: 20040414
  Transmission Date: 20050107
  Serious: No
  Sender: FDA-Public Use
  Company Number: M04-341-114

PATIENT
  Age: 70 Year
  Sex: Female
  Weight: 55 kg

DRUGS (7)
  1. VELCADE [Suspect]
     Indication: MULTIPLE MYELOMA
     Dosage: 2 MG: INTRAVENOUS BOLUS
     Route: 040
     Dates: start: 20040316
  2. AREDIA [Concomitant]
  3. DARVOCET-N(PROPACET) [Concomitant]
  4. DURAGESIC [Concomitant]
  5. LORCET-HD [Concomitant]
  6. RESTORIL [Concomitant]
  7. SOLU-MEDROL [Concomitant]

REACTIONS (1)
  - INJECTION SITE PIGMENTATION CHANGES [None]
